FAERS Safety Report 4314082-9 (Version None)
Quarter: 2004Q1

REPORT INFORMATION
  Report Type: 
  Country: None (occurrence: None)
  Receive Date: 20040308
  Receipt Date: 20040308
  Transmission Date: 20041129
  Serious: Yes (Hospitalization)
  Sender: FDA-Public Use
  Company Number: None

PATIENT
  Sex: Female
  Weight: 72 kg

DRUGS (12)
  1. SIMVASTATIN [Suspect]
     Indication: HYPERLIPIDAEMIA
     Dosage: 20 MG HS ORAL
     Route: 048
     Dates: start: 20030131, end: 20030921
  2. GEMFIBROZIL [Suspect]
     Indication: HYPERLIPIDAEMIA
     Dosage: 600 MG BID ORAL
     Route: 048
     Dates: start: 20030217, end: 20030921
  3. CITALOPRAM HYDROBROMIDE [Concomitant]
  4. FLUTICASONE PROP [Concomitant]
  5. GABAPENTIN [Concomitant]
  6. IRBESARTAN 150MGLEVOTHYROXINE NA [Concomitant]
  7. SYNTHROID [Concomitant]
  8. METFORMIN HCL [Concomitant]
  9. METHOCARBAMOL [Concomitant]
  10. RABEPRAZOLE NA [Concomitant]
  11. RANITIDINE HCL [Concomitant]
  12. VERAPAMIL HCL [Concomitant]

REACTIONS (2)
  - RED BLOOD CELL SEDIMENTATION RATE INCREASED [None]
  - RHABDOMYOLYSIS [None]
